FAERS Safety Report 11893915 (Version 1)
Quarter: 2016Q1

REPORT INFORMATION
  Report Type: Spontaneous
  Country: CA (occurrence: CA)
  Receive Date: 20160107
  Receipt Date: 20160107
  Transmission Date: 20160526
  Serious: Yes (Other)
  Sender: FDA-Public Use
  Company Number: CA-ROCHE-1689916

PATIENT
  Age: 79 Year
  Sex: Female

DRUGS (6)
  1. PREDNISONE. [Concomitant]
     Active Substance: PREDNISONE
  2. ADVAIR HFA [Concomitant]
     Active Substance: FLUTICASONE PROPIONATE\SALMETEROL XINAFOATE
  3. QVAR [Concomitant]
     Active Substance: BECLOMETHASONE DIPROPIONATE
  4. XOLAIR [Suspect]
     Active Substance: OMALIZUMAB
     Indication: ASTHMA
     Route: 058
     Dates: start: 20150716
  5. VENTOLIN [Concomitant]
     Active Substance: ALBUTEROL SULFATE
  6. SPIRIVA [Concomitant]
     Active Substance: TIOTROPIUM BROMIDE MONOHYDRATE

REACTIONS (11)
  - Cough [Unknown]
  - Nausea [Recovered/Resolved]
  - Blood pressure systolic increased [Unknown]
  - Wound [Unknown]
  - Productive cough [Unknown]
  - Dizziness [Recovered/Resolved]
  - Fall [Unknown]
  - Joint injury [Unknown]
  - Dyspnoea [Unknown]
  - Fatigue [Unknown]
  - Pruritus [Recovered/Resolved]

NARRATIVE: CASE EVENT DATE: 20150720
